FAERS Safety Report 7797162-5 (Version None)
Quarter: 2011Q4

REPORT INFORMATION
  Report Type: 
  Country: None (occurrence: None)
  Receive Date: 20111005
  Receipt Date: 20110923
  Transmission Date: 20120403
  Serious: Yes (Hospitalization, Other)
  Sender: FDA-Public Use
  Company Number: US-BAYER-2011-024091

PATIENT
  Age: 19 Year
  Sex: Female
  Weight: 93.878 kg

DRUGS (3)
  1. YAZ [Suspect]
     Dosage: UNK
     Route: 048
     Dates: start: 20071101
  2. IBUPROFEN [Concomitant]
     Indication: DYSMENORRHOEA
     Dosage: UNK
     Dates: start: 20060101
  3. YASMIN [Suspect]
     Dosage: UNK
     Route: 048
     Dates: start: 20050901, end: 20080101

REACTIONS (7)
  - CHOLECYSTITIS ACUTE [None]
  - GENERAL PHYSICAL HEALTH DETERIORATION [None]
  - GALLBLADDER DISORDER [None]
  - BILE DUCT STONE [None]
  - CHOLELITHIASIS [None]
  - INJURY [None]
  - PAIN [None]
